FAERS Safety Report 24725800 (Version 1)
Quarter: 2024Q4

REPORT INFORMATION
  Report Type: Spontaneous
  Country: CN (occurrence: CN)
  Receive Date: 20241212
  Receipt Date: 20241212
  Transmission Date: 20250115
  Serious: Yes (Hospitalization, Other)
  Sender: NOVARTIS
  Company Number: CN-002147023-NVSC2024CN233105

PATIENT
  Age: 72 Year
  Sex: Male

DRUGS (5)
  1. SACUBITRIL\VALSARTAN [Suspect]
     Active Substance: SACUBITRIL\VALSARTAN
     Indication: Hypertension
     Dosage: 200 MG, QD (1 TABLET)
     Route: 048
     Dates: start: 20241113, end: 20241118
  2. IRBESARTAN [Concomitant]
     Active Substance: IRBESARTAN
     Indication: Product used for unknown indication
     Dosage: 1 DOSAGE FORM, QD
     Route: 065
  3. NIFEDIPINE [Concomitant]
     Active Substance: NIFEDIPINE
     Indication: Product used for unknown indication
     Dosage: 1 DOSAGE FORM, QD
     Route: 065
  4. METOPROLOL [Concomitant]
     Active Substance: METOPROLOL
     Indication: Product used for unknown indication
     Dosage: 1 DOSAGE FORM, QD
     Route: 065
  5. INDOBUFEN [Concomitant]
     Active Substance: INDOBUFEN
     Indication: Product used for unknown indication
     Dosage: 0.5 DOSAGE FORM, BID (HALF TABLET))
     Route: 065

REACTIONS (12)
  - Blood creatinine increased [Recovering/Resolving]
  - Blood pressure inadequately controlled [Unknown]
  - Blood pressure increased [Unknown]
  - Chest pain [Unknown]
  - Angina pectoris [Unknown]
  - Arteriosclerosis coronary artery [Unknown]
  - Renal function test abnormal [Unknown]
  - Blood albumin decreased [Unknown]
  - Albumin globulin ratio decreased [Unknown]
  - AST/ALT ratio abnormal [Unknown]
  - Blood triglycerides increased [Unknown]
  - Red blood cell count increased [Unknown]

NARRATIVE: CASE EVENT DATE: 20241114
